FAERS Safety Report 22933769 (Version 2)
Quarter: 2023Q4

REPORT INFORMATION
  Report Type: Spontaneous
  Country: PT (occurrence: PT)
  Receive Date: 20230912
  Receipt Date: 20231018
  Transmission Date: 20240110
  Serious: Yes (Other)
  Sender: FDA-Public Use
  Company Number: PT-TEVA-2023-PT-2924831

PATIENT
  Age: 95 Year
  Sex: Male

DRUGS (1)
  1. AMOXICILLIN\CLAVULANIC ACID [Suspect]
     Active Substance: AMOXICILLIN\CLAVULANIC ACID
     Indication: Pneumonia aspiration
     Dosage: EVERY 8 HOURS
     Route: 042

REACTIONS (2)
  - Fixed eruption [Recovered/Resolved]
  - Type IV hypersensitivity reaction [Recovered/Resolved]
